FAERS Safety Report 5744000-8 (Version None)
Quarter: 2008Q2

REPORT INFORMATION
  Report Type: 
  Country: None (occurrence: None)
  Receive Date: 20080516
  Receipt Date: 20080505
  Transmission Date: 20081010
  Serious: Yes (Other)
  Sender: FDA-Public Use
  Company Number: 2007EU002573

PATIENT
  Age: 27 Year
  Sex: Female
  Weight: 55 kg

DRUGS (10)
  1. PROGRAF [Suspect]
     Indication: LUNG TRANSPLANT
     Dosage: UNKNOWN/D
     Dates: start: 20060920
  2. LEVEMIR (INSULIN DETEMIR) [Concomitant]
  3. MYCOPHENOLATE MOFETIL [Concomitant]
  4. APREDNISLON (PREDNISOLONE) [Concomitant]
  5. CALCIUM D (ERGOCALCIFEROL, CALCIUM LACTATE, CALCIUM GLUCONATE, ASCORBI [Concomitant]
  6. ACCUPRO (QUINAPRIL HYDROCHLORIDE) [Concomitant]
  7. NEXIUM [Concomitant]
  8. VITAMIN B [Concomitant]
  9. SUPRADYN (ASCORBIC ACID) [Concomitant]
  10. CREON [Concomitant]

REACTIONS (2)
  - GASTROENTERITIS BACTERIAL [None]
  - PANNICULITIS [None]
